FAERS Safety Report 7685238-2 (Version None)
Quarter: 2011Q3

REPORT INFORMATION
  Report Type: 
  Country: None (occurrence: None)
  Receive Date: 20110816
  Receipt Date: 20110810
  Transmission Date: 20111222
  Serious: Yes (Hospitalization)
  Sender: FDA-Public Use
  Company Number: US-ELI_LILLY_AND_COMPANY-US200906005627

PATIENT
  Sex: Female
  Weight: 117.91 kg

DRUGS (29)
  1. TRICOR [Concomitant]
     Dosage: 145 MG, UNKNOWN
  2. ZOCOR [Concomitant]
     Dosage: 10 MG, DAILY (1/D)
  3. METHOCARBAMOL [Concomitant]
     Dosage: 500 MG, UNKNOWN
  4. ROXICET [Concomitant]
     Dosage: UNK, UNKNOWN
  5. PRAVACHOL [Concomitant]
     Dosage: UNK, UNKNOWN
  6. LYRICA [Concomitant]
     Dosage: UNK, UNKNOWN
  7. GABAPENTIN [Concomitant]
     Dosage: 600 MG, EVERY 8 HRS
     Route: 048
  8. NORVASC [Concomitant]
     Dosage: 5 MG, DAILY (1/D)
  9. FAMOTIDINE [Concomitant]
     Dosage: 20 MG, UNKNOWN
  10. AMBIEN CR [Concomitant]
     Dosage: 12.5 MG, DAILY (1/D)
     Route: 048
  11. FLUTICASONE PROPIONATE [Concomitant]
     Dosage: 50 UG, DAILY (1/D)
  12. BYETTA [Suspect]
     Dosage: 5 UG, 2/D
     Route: 058
     Dates: start: 20060613, end: 20070423
  13. LANTUS [Concomitant]
     Indication: DIABETES MELLITUS
     Dosage: UNK, EACH EVENING
     Route: 058
  14. NOVOLOG [Concomitant]
     Indication: DIABETES MELLITUS
     Dosage: UNK, 2/D
     Route: 058
  15. ACTOS [Concomitant]
     Indication: DIABETES MELLITUS
     Dosage: 15 MG, UNKNOWN
  16. PREVACID [Concomitant]
     Dosage: 30 MG, UNKNOWN
  17. ALTACE [Concomitant]
     Dosage: 10 MG, UNKNOWN
  18. CYMBALTA [Concomitant]
     Dosage: 30 MG, UNKNOWN
  19. NEXIUM [Concomitant]
     Dosage: 20 MG, UNKNOWN
  20. SALMETEROL XINAFOATE [Concomitant]
     Dosage: UNK, 2/D
     Route: 055
  21. METFORMIN HCL [Concomitant]
     Indication: DIABETES MELLITUS
     Dosage: 500 MG, UNKNOWN
  22. ASPIRIN [Concomitant]
     Dosage: 81 MG, UNKNOWN
  23. GEMFIBROZIL [Concomitant]
     Dosage: 600 MG, UNKNOWN
  24. AMITRIPTYLINE HCL [Concomitant]
     Dosage: 25 MG, UNKNOWN
  25. METOPROLOL /00376902/ [Concomitant]
     Dosage: 50 MG, 2/D
     Route: 048
  26. FOSINOPRIL SODIUM [Concomitant]
     Dosage: 40 MG, UNKNOWN
  27. POTASSIUM CHLORIDE [Concomitant]
     Dosage: 10 MEQ, UNKNOWN
  28. NAPROXEN [Concomitant]
     Dosage: 500 MG, UNKNOWN
  29. CIPROFLOXACIN [Concomitant]
     Dosage: 500 MG, UNKNOWN

REACTIONS (7)
  - BILE DUCT OBSTRUCTION [None]
  - HEADACHE [None]
  - ABDOMINAL PAIN [None]
  - PANCREATITIS [None]
  - OFF LABEL USE [None]
  - RENAL INJURY [None]
  - DIARRHOEA [None]
